FAERS Safety Report 15017776 (Version 2)
Quarter: 2018Q4

REPORT INFORMATION
  Report Type: Report from Study
  Country: JP (occurrence: JP)
  Receive Date: 20180615
  Receipt Date: 20181219
  Transmission Date: 20190204
  Serious: Yes (Death)
  Sender: FDA-Public Use
  Company Number: JP-PFIZER INC-2018243489

PATIENT

DRUGS (1)
  1. PACLITAXEL. [Suspect]
     Active Substance: PACLITAXEL
     Indication: GASTRIC CANCER
     Dosage: 80 MG/M2, CYCLIC (ON DAYS 1, 8, AND 15 OF 4-WEEK CYCLES, 3 WEEKS ON, 1 WEEK OFF, INFUSION)
     Route: 042
     Dates: start: 2016

REACTIONS (1)
  - Pulmonary embolism [Fatal]
